FAERS Safety Report 24150861 (Version 2)
Quarter: 2025Q1

REPORT INFORMATION
  Report Type: Spontaneous
  Country: US (occurrence: US)
  Receive Date: 20240730
  Receipt Date: 20250213
  Transmission Date: 20250408
  Serious: No
  Sender: PADAGIS
  Company Number: US-PADAGIS-2024PAD01214

PATIENT

DRUGS (2)
  1. DEXAMETHASONE\TOBRAMYCIN [Suspect]
     Active Substance: DEXAMETHASONE\TOBRAMYCIN
     Indication: Eye allergy
     Route: 065
  2. DEXAMETHASONE\TOBRAMYCIN [Suspect]
     Active Substance: DEXAMETHASONE\TOBRAMYCIN
     Route: 065

REACTIONS (3)
  - Visual impairment [Not Recovered/Not Resolved]
  - Disease recurrence [Unknown]
  - Drug ineffective for unapproved indication [Unknown]
